FAERS Safety Report 14193010 (Version 1)
Quarter: 2017Q4

REPORT INFORMATION
  Report Type: Spontaneous
  Country: AR (occurrence: AR)
  Receive Date: 20171115
  Receipt Date: 20171115
  Transmission Date: 20180321
  Serious: Yes (Other)
  Sender: FDA-Public Use
  Company Number: PHHY2017AR167355

PATIENT
  Sex: Male

DRUGS (1)
  1. SANDIMMUN NEORAL [Suspect]
     Active Substance: CYCLOSPORINE
     Indication: PRODUCT USED FOR UNKNOWN INDICATION
     Dosage: 100 MG, QD
     Route: 065

REACTIONS (3)
  - Intentional self-injury [Not Recovered/Not Resolved]
  - Scratch [Not Recovered/Not Resolved]
  - Malaise [Not Recovered/Not Resolved]
